FAERS Safety Report 7170900-0 (Version None)
Quarter: 2010Q4

REPORT INFORMATION
  Report Type: 
  Country: None (occurrence: None)
  Receive Date: 20101217
  Receipt Date: 20101208
  Transmission Date: 20110411
  Serious: Yes (Other)
  Sender: FDA-Public Use
  Company Number: US-ROCHE-727590

PATIENT
  Sex: Male
  Weight: 72.6 kg

DRUGS (6)
  1. ACCUTANE [Suspect]
     Indication: ACNE
     Route: 065
     Dates: start: 19950601, end: 19951201
  2. ACCUTANE [Suspect]
     Route: 065
     Dates: start: 19990401, end: 19990701
  3. ACCUTANE [Suspect]
     Route: 065
     Dates: start: 20000104, end: 20000229
  4. ACCUTANE [Suspect]
     Route: 065
     Dates: start: 20000307, end: 20000327
  5. ACCUTANE [Suspect]
     Route: 065
     Dates: start: 20000328
  6. CANASA [Suspect]
     Route: 054

REACTIONS (12)
  - ABDOMINAL PAIN [None]
  - CROHN'S DISEASE [None]
  - DEPRESSION [None]
  - DRUG HYPERSENSITIVITY [None]
  - EMOTIONAL DISTRESS [None]
  - GROIN PAIN [None]
  - HEADACHE [None]
  - MUSCLE INJURY [None]
  - NAUSEA [None]
  - PROCTITIS ULCERATIVE [None]
  - RECTAL HAEMORRHAGE [None]
  - SUICIDAL IDEATION [None]
